FAERS Safety Report 7842950-X (Version None)
Quarter: 2011Q4

REPORT INFORMATION
  Report Type: 
  Country: None (occurrence: None)
  Receive Date: 20111025
  Receipt Date: 20111012
  Transmission Date: 20120403
  Serious: Yes (Hospitalization)
  Sender: FDA-Public Use
  Company Number: US-ELI_LILLY_AND_COMPANY-US201110003273

PATIENT
  Age: 37 Year
  Sex: Female

DRUGS (9)
  1. MISOPROSTOL [Concomitant]
     Dosage: UNK, BID
  2. TRAZODONE HYDROCHLORIDE [Concomitant]
     Indication: INSOMNIA
     Dosage: 50 MG, PRN
  3. CARAFATE [Concomitant]
     Dosage: UNK, BID
  4. PRAZOSIN HCL [Concomitant]
     Dosage: 1 MG, EACH EVENING
  5. CYMBALTA [Suspect]
     Indication: DEPRESSION
     Dosage: 60 MG, QD
  6. NEXIUM [Concomitant]
     Dosage: 40 MG, BID
  7. FORTICAL                           /00371903/ [Concomitant]
     Dosage: UNK, QD
  8. PERCOCET [Concomitant]
  9. ZYPREXA ZYDIS [Suspect]
     Indication: PSYCHOTIC DISORDER
     Dosage: 10 MG, QD

REACTIONS (4)
  - PSYCHOTIC DISORDER [None]
  - GASTRIC DISORDER [None]
  - OFF LABEL USE [None]
  - WRONG TECHNIQUE IN DRUG USAGE PROCESS [None]
